FAERS Safety Report 9875877 (Version 1)
Quarter: 2014Q1

REPORT INFORMATION
  Report Type: Spontaneous
  Country: GB (occurrence: None)
  Receive Date: 20140204
  Receipt Date: 20140204
  Transmission Date: 20141002
  Serious: Yes (Disabling)
  Sender: FDA-Public Use
  Company Number: AUR-APL-2014-00978

PATIENT
  Age: 60 Year
  Sex: Male
  Weight: 82.55 kg

DRUGS (13)
  1. SIMVASTATIN (SIMVASTATIN) [Suspect]
     Indication: HYPERCHOLESTEROLAEMIA
     Route: 048
     Dates: end: 20100404
  2. ROSUVASTATIN (ROSUVASTATIN) [Suspect]
     Indication: HYPERCHOLESTEROLAEMIA
  3. INSULIN GLULISINE (INSULIN GLULISINE) [Concomitant]
  4. ASPIRIN (ACETYLSALICYLIC ACID) [Concomitant]
  5. CO-CODAMOL (PANADEINE CO) [Concomitant]
  6. DEEP HEAT (MENTHOL W/METHYL SALICYLATE) [Concomitant]
  7. GREEN-LIPPED MUSSEL (HARPAGOPHYTUM PROCUMBENS W/HERBAL EXTRACT NOS) [Concomitant]
  8. IBUPROFEN (IBUPROFEN) [Concomitant]
  9. INSULIN GLARGINE (INSULIN GLARGINE) [Concomitant]
  10. LAXIDO (ELECTROLYTES NOS W/MACROGOL 3350) [Concomitant]
  11. METFORMIN (METFORMIN) [Concomitant]
  12. OMEPRAZOLE (OMEPRAZOLE) [Concomitant]
  13. VOLTAROL (DICLOFENAC SODIUM) [Concomitant]

REACTIONS (2)
  - Amnesia [None]
  - Muscle atrophy [None]
